FAERS Safety Report 20327817 (Version 1)
Quarter: 2022Q1

REPORT INFORMATION
  Report Type: Spontaneous
  Country: US (occurrence: None)
  Receive Date: 20220112
  Receipt Date: 20220112
  Transmission Date: 20220423
  Serious: Yes (Other)
  Sender: FDA-Public Use
  Company Number: US-ROCHE-2998505

PATIENT
  Age: 73 Year
  Sex: Female
  Weight: 49.940 kg

DRUGS (5)
  1. RITUXAN [Suspect]
     Active Substance: RITUXIMAB
     Indication: Rheumatoid arthritis
     Route: 041
     Dates: start: 2016
  2. XARELTO [Concomitant]
     Active Substance: RIVAROXABAN
     Indication: Atrial fibrillation
     Route: 048
  3. CLINORIL [Concomitant]
     Active Substance: SULINDAC
     Indication: Rheumatoid arthritis
     Route: 048
  4. CYTOTEC [Concomitant]
     Active Substance: MISOPROSTOL
     Route: 048
  5. PANTOPRAZOLE [Concomitant]
     Active Substance: PANTOPRAZOLE
     Indication: Hiatus hernia
     Dosage: TAKES IN MORNING 20 MINUTES PRIOR TO EATING
     Route: 048

REACTIONS (4)
  - Rheumatoid arthritis [Not Recovered/Not Resolved]
  - Cough [Recovered/Resolved]
  - Atrial fibrillation [Not Recovered/Not Resolved]
  - Dizziness [Unknown]

NARRATIVE: CASE EVENT DATE: 20211213
